FAERS Safety Report 16999645 (Version 1)
Quarter: 2019Q4

REPORT INFORMATION
  Report Type: Spontaneous
  Country: US (occurrence: US)
  Receive Date: 20191106
  Receipt Date: 20191106
  Transmission Date: 20200122
  Serious: No
  Sender: FDA-Public Use
  Company Number: US-NEXGEN PHARMA, INC.-2076520

PATIENT

DRUGS (1)
  1. BAC 7029 (BUTALBITAL 50MG, ACETAMINOPHEN 300MG AND CAFFEINE 40MG CAPSU [Suspect]
     Active Substance: ACETAMINOPHEN\BUTALBITAL\CAFFEINE
     Route: 048

REACTIONS (1)
  - Flat affect [Unknown]
